FAERS Safety Report 6044982-3 (Version None)
Quarter: 2009Q1

REPORT INFORMATION
  Report Type: 
  Country: None (occurrence: None)
  Receive Date: 20090121
  Receipt Date: 20090113
  Transmission Date: 20090719
  Serious: Yes (Other)
  Sender: FDA-Public Use
  Company Number: US-JNJFOC-20090102989

PATIENT
  Age: 13 Year
  Sex: Female
  Weight: 45.36 kg

DRUGS (2)
  1. MOTRIN IB [Suspect]
     Route: 048
  2. MOTRIN IB [Suspect]
     Indication: ARTHRALGIA
     Route: 048

REACTIONS (2)
  - DYSPHAGIA [None]
  - ORAL HERPES [None]
